FAERS Safety Report 5444106-7 (Version None)
Quarter: 2007Q3

REPORT INFORMATION
  Report Type: 
  Country: None (occurrence: None)
  Receive Date: 20070905
  Receipt Date: 20070824
  Transmission Date: 20080115
  Serious: Yes (Hospitalization, Other)
  Sender: FDA-Public Use
  Company Number: US-SHR-US-2007-021869

PATIENT
  Age: 79 Year
  Sex: Female
  Weight: 57 kg

DRUGS (7)
  1. BETASERON [Suspect]
     Indication: RELAPSING-REMITTING MULTIPLE SCLEROSIS
     Dosage: 8 MIU, EVERY 2D
     Route: 058
     Dates: start: 19931210
  2. ANTIHYPERTENSIVES [Concomitant]
     Indication: HYPERTENSION
  3. NEURONTIN [Concomitant]
  4. BACLOFEN [Concomitant]
  5. PROZAC [Concomitant]
  6. ACTONEL [Concomitant]
  7. LOTREL [Concomitant]
     Dosage: 10/20

REACTIONS (3)
  - BLOOD PRESSURE FLUCTUATION [None]
  - INJECTION SITE REACTION [None]
  - RENAL ARTERY OCCLUSION [None]
